FAERS Safety Report 5165276-4 (Version None)
Quarter: 2006Q4

REPORT INFORMATION
  Report Type: 
  Country: None (occurrence: None)
  Receive Date: 20061124
  Receipt Date: 20061110
  Transmission Date: 20070319
  Serious: Yes (Other)
  Sender: FDA-Public Use
  Company Number: 2006142096

PATIENT
  Age: 90 Year
  Sex: Female

DRUGS (4)
  1. NEURONTIN [Suspect]
     Dosage: 100 MG
     Dates: start: 20061103, end: 20061109
  2. COUMADIN [Concomitant]
  3. AMITRIPTYLINE HCL [Concomitant]
  4. LOPRESSOR [Concomitant]

REACTIONS (5)
  - ABNORMAL BEHAVIOUR [None]
  - DELIRIUM [None]
  - DYSARTHRIA [None]
  - HALLUCINATION, TACTILE [None]
  - HALLUCINATION, VISUAL [None]
